FAERS Safety Report 9707439 (Version 1)
Quarter: 2013Q4

REPORT INFORMATION
  Report Type: Report from Study
  Country: VE (occurrence: VE)
  Receive Date: 20131125
  Receipt Date: 20131125
  Transmission Date: 20140711
  Serious: Yes (Hospitalization, Other)
  Sender: FDA-Public Use
  Company Number: PHHY2013VE135019

PATIENT
  Age: 68 Year
  Sex: Female

DRUGS (8)
  1. ACLASTA [Suspect]
     Indication: OSTEOPOROSIS
     Dosage: 5 MG, ANNUALLY
     Route: 042
     Dates: start: 20101130
  2. ACLASTA [Suspect]
     Dosage: 5 MG, ANNUALLY
     Route: 042
     Dates: start: 2011
  3. ACLASTA [Suspect]
     Dosage: 5 MG, ANNUALLY
     Route: 042
     Dates: start: 20120830, end: 2013
  4. BARATOL DUO [Concomitant]
     Dosage: 1.5 MG, UNK
  5. FENOBARBITAL [Concomitant]
     Indication: EPILEPSY
     Dosage: 100 MG, UNK
     Route: 048
  6. EPAMIN [Concomitant]
     Dosage: 100 MG, UNK
     Route: 048
  7. RIVOTRIL [Concomitant]
     Dosage: 2 MG, UNK
  8. DILTIAZEM [Concomitant]
     Indication: HYPERTENSION
     Dosage: 60 MG, UNK
     Route: 048

REACTIONS (3)
  - Femur fracture [Recovered/Resolved]
  - Fall [Unknown]
  - Pain [Not Recovered/Not Resolved]
